FAERS Safety Report 8645488 (Version 2)
Quarter: 2024Q2

REPORT INFORMATION
  Report Type: Spontaneous
  Country: FR (occurrence: FR)
  Receive Date: 20120702
  Receipt Date: 20240403
  Transmission Date: 20240716
  Serious: Yes (Hospitalization)
  Sender: FDA-Public Use
  Company Number: FR-ROCHE-1082871

PATIENT
  Age: 77 Year
  Sex: Female
  Weight: 80 kg

DRUGS (2)
  1. CEFTRIAXONE SODIUM [Suspect]
     Active Substance: CEFTRIAXONE SODIUM
     Indication: Pulmonary sepsis
     Route: 042
     Dates: start: 20120607, end: 20120607
  2. LEVOFLOXACIN [Suspect]
     Active Substance: LEVOFLOXACIN
     Indication: Pulmonary sepsis
     Route: 042
     Dates: start: 20120607, end: 20120607

REACTIONS (1)
  - Injection site inflammation [Recovered/Resolved]

NARRATIVE: CASE EVENT DATE: 20120607
